FAERS Safety Report 10927189 (Version 2)
Quarter: 2015Q2

REPORT INFORMATION
  Report Type: Spontaneous
  Country: US (occurrence: US)
  Receive Date: 20150318
  Receipt Date: 20150407
  Transmission Date: 20150821
  Serious: Yes (Other)
  Sender: FDA-Public Use
  Company Number: US-009507513-1503USA004843

PATIENT
  Age: 21 Year
  Sex: Female

DRUGS (9)
  1. FLUOXETINE [Concomitant]
     Active Substance: FLUOXETINE\FLUOXETINE HYDROCHLORIDE
  2. MEPROBAMATE. [Concomitant]
     Active Substance: MEPROBAMATE
  3. CARISOPRODOL. [Concomitant]
     Active Substance: CARISOPRODOL
  4. ORGATRAX [Suspect]
     Active Substance: HYDROXYZINE HYDROCHLORIDE
  5. SUMATRIPTAN. [Suspect]
     Active Substance: SUMATRIPTAN
  6. DEXTROMETHORPHAN [Suspect]
     Active Substance: DEXTROMETHORPHAN
  7. ORPHENADRINE [Concomitant]
     Active Substance: ORPHENADRINE
  8. CARBAMAZEPINE. [Concomitant]
     Active Substance: CARBAMAZEPINE
  9. DOXYLAMINE SUCCINATE [Concomitant]
     Active Substance: DOXYLAMINE SUCCINATE

REACTIONS (1)
  - Toxicity to various agents [Unknown]
